FAERS Safety Report 8232284-6 (Version None)
Quarter: 2012Q1

REPORT INFORMATION
  Report Type: 
  Country: None (occurrence: None)
  Receive Date: 20120323
  Receipt Date: 20120316
  Transmission Date: 20120608
  Serious: Yes (Other)
  Sender: FDA-Public Use
  Company Number: PL-SANOFI-AVENTIS-2012SA018029

PATIENT
  Age: 44 Year
  Sex: Male

DRUGS (5)
  1. POTASSIUM CHLORIDE [Concomitant]
  2. NEBIVOLOL HCL [Concomitant]
  3. MAGNE-B6 [Concomitant]
  4. MULTAQ [Suspect]
     Route: 048
     Dates: start: 20111001, end: 20120215
  5. RAMIPRIL [Concomitant]

REACTIONS (2)
  - TRANSAMINASES INCREASED [None]
  - ARRHYTHMIA [None]
